FAERS Safety Report 5084401-7 (Version None)
Quarter: 2006Q3

REPORT INFORMATION
  Report Type: 
  Country: None (occurrence: None)
  Receive Date: 20060817
  Receipt Date: 20060817
  Transmission Date: 20061208
  Serious: Yes (Hospitalization)
  Sender: FDA-Public Use
  Company Number: None

PATIENT
  Age: 74 Year
  Sex: Male
  Weight: 78.0187 kg

DRUGS (1)
  1. PHYTONADIONE [Suspect]
     Indication: PREOPERATIVE CARE
     Dosage: 10 MG ONCE SQ [ONE DOSE]
     Route: 058
     Dates: start: 20060726, end: 20060726

REACTIONS (1)
  - HYPOTENSION [None]
